FAERS Safety Report 7084059-1 (Version None)
Quarter: 2010Q4

REPORT INFORMATION
  Report Type: 
  Country: None (occurrence: None)
  Receive Date: 20101026
  Receipt Date: 20101019
  Transmission Date: 20110411
  Serious: Yes (Other)
  Sender: FDA-Public Use
  Company Number: 2010SP055741

PATIENT
  Age: 38 Year
  Sex: Female

DRUGS (1)
  1. CELESTONE [Suspect]
     Indication: PRODUCT USED FOR UNKNOWN INDICATION
     Dosage: 1 GTT;Q8H
     Dates: start: 20100902

REACTIONS (3)
  - KERATITIS [None]
  - MYDRIASIS [None]
  - PHOTOPHOBIA [None]
